FAERS Safety Report 6611639-7 (Version None)
Quarter: 2010Q1

REPORT INFORMATION
  Report Type: 
  Country: None (occurrence: None)
  Receive Date: 20100303
  Receipt Date: 20091221
  Transmission Date: 20100710
  Serious: Yes (Other)
  Sender: FDA-Public Use
  Company Number: PHHY2009ZA57778

PATIENT
  Sex: Female

DRUGS (4)
  1. CO-TAREG [Suspect]
     Indication: HYPERTENSION
     Dosage: 80/12.5 MG
     Route: 048
  2. VASCORD [Concomitant]
     Indication: BLOOD PRESSURE
  3. ELTROXIN [Concomitant]
  4. AZOR (ALPRAZOLAM) [Concomitant]

REACTIONS (7)
  - BLOOD CHOLESTEROL INCREASED [None]
  - BLOOD GLUCOSE INCREASED [None]
  - BLOOD PRESSURE INADEQUATELY CONTROLLED [None]
  - BLOOD PRESSURE INCREASED [None]
  - CATARACT OPERATION [None]
  - PANIC ATTACK [None]
  - RASH [None]
